FAERS Safety Report 14613629 (Version 1)
Quarter: 2018Q1

REPORT INFORMATION
  Report Type: Spontaneous
  Country: US (occurrence: US)
  Receive Date: 20180308
  Receipt Date: 20180308
  Transmission Date: 20180509
  Serious: No
  Sender: FDA-Public Use
  Company Number: None

PATIENT
  Age: 72 Year
  Sex: Female

DRUGS (1)
  1. REVLIMID [Suspect]
     Active Substance: LENALIDOMIDE
     Indication: MYELODYSPLASTIC SYNDROME
     Dosage: DATES OF USE - 22 FEB 2018 X 2 DAYS?FREQUENCY - DAILY X7D, OFF 7D
     Route: 048
     Dates: start: 20180222

REACTIONS (3)
  - Headache [None]
  - Hypoaesthesia [None]
  - Pain in jaw [None]

NARRATIVE: CASE EVENT DATE: 20180224
